FAERS Safety Report 10025904 (Version 1)
Quarter: 2014Q1

REPORT INFORMATION
  Report Type: Spontaneous
  Country: GB (occurrence: None)
  Receive Date: 20140314
  Receipt Date: 20140314
  Transmission Date: 20141002
  Serious: Yes (Other)
  Sender: FDA-Public Use
  Company Number: AUR-APL-2014-02570

PATIENT
  Age: 56 Year
  Sex: Female

DRUGS (2)
  1. GABAPENTIN (GABAPENTIN) [Suspect]
     Indication: NEURALGIA
     Route: 048
     Dates: start: 201303, end: 201402
  2. PARACETAMOL (PARACETAMOL) [Concomitant]

REACTIONS (2)
  - Gingival pain [None]
  - Tooth loss [None]
